FAERS Safety Report 9417273 (Version 1)
Quarter: 2013Q3

REPORT INFORMATION
  Report Type: Spontaneous
  Country: AU (occurrence: AU)
  Receive Date: 20130719
  Receipt Date: 20130719
  Transmission Date: 20140515
  Serious: Yes (Hospitalization)
  Sender: FDA-Public Use
  Company Number: 2013000168

PATIENT
  Age: 49 Year
  Sex: Male

DRUGS (1)
  1. ACEON [Suspect]
     Indication: HYPERTENSION
     Route: 048
     Dates: start: 20130205

REACTIONS (5)
  - Stridor [None]
  - Angioedema [None]
  - Lip swelling [None]
  - Swollen tongue [None]
  - Palatal oedema [None]
